FAERS Safety Report 6822819-X (Version None)
Quarter: 2010Q3

REPORT INFORMATION
  Report Type: 
  Country: None (occurrence: None)
  Receive Date: 20100706
  Receipt Date: 20100706
  Transmission Date: 20110219
  Serious: Yes (Other)
  Sender: FDA-Public Use
  Company Number: None

PATIENT
  Sex: Female
  Weight: 74.8435 kg

DRUGS (1)
  1. BYSTOLIC [Suspect]
     Indication: HYPERTENSION
     Dosage: 5ML ONE A DAY BUCCAL
     Route: 002
     Dates: start: 20100603, end: 20100629

REACTIONS (7)
  - ASTHENIA [None]
  - CHEST PAIN [None]
  - FATIGUE [None]
  - HEADACHE [None]
  - NECK PAIN [None]
  - NERVOUSNESS [None]
  - TREMOR [None]
